FAERS Safety Report 9348282 (Version 1)
Quarter: 2013Q2

REPORT INFORMATION
  Report Type: Spontaneous
  Country: US (occurrence: US)
  Receive Date: 20130614
  Receipt Date: 20130614
  Transmission Date: 20140414
  Serious: Yes (Hospitalization, Other)
  Sender: FDA-Public Use
  Company Number: US-SANOFI-AVENTIS-2013SA059316

PATIENT
  Age: 75 Year
  Sex: Male

DRUGS (4)
  1. LANTUS [Suspect]
     Indication: TYPE 2 DIABETES MELLITUS
     Dosage: DOSAGE: 20-50 UNITS NIGHTLY.
     Route: 058
  2. PLAVIX [Suspect]
  3. GLUCOPHAGE [Suspect]
  4. GLIPIZIDE [Suspect]

REACTIONS (3)
  - Colon cancer [Recovered/Resolved]
  - Myocardial infarction [Recovered/Resolved]
  - Hyperglycaemia [Recovered/Resolved]
